FAERS Safety Report 7420298-5 (Version None)
Quarter: 2011Q2

REPORT INFORMATION
  Report Type: 
  Country: None (occurrence: None)
  Receive Date: 20110418
  Receipt Date: 20110405
  Transmission Date: 20111010
  Serious: Yes (Hospitalization, Other)
  Sender: FDA-Public Use
  Company Number: PHHY2011US07569

PATIENT
  Sex: Female
  Weight: 88.61 kg

DRUGS (21)
  1. QUINAPRIL [Concomitant]
  2. SPIRONOLACTONE [Concomitant]
  3. FLEXPEN [Concomitant]
  4. EXJADE [Suspect]
     Indication: MYELODYSPLASTIC SYNDROME
     Dosage: 2500 MG
     Route: 048
     Dates: start: 20090902, end: 20110404
  5. ANTIBIOTICS [Concomitant]
     Dosage: UNK
  6. NEXIUM [Concomitant]
  7. COREG [Concomitant]
  8. LEVEMIR [Concomitant]
  9. POTASSIUM [Concomitant]
  10. VICODIN [Concomitant]
  11. LIPOFLAVONOID [Concomitant]
  12. NITROGLYCERIN [Concomitant]
  13. AMBIEN [Concomitant]
  14. MECLIZINE [Concomitant]
  15. ASPIRIN [Concomitant]
  16. LEVATOL [Concomitant]
  17. GABAPENTIN [Concomitant]
  18. CENTRUM SILVER [Concomitant]
  19. VICOPROFEN [Concomitant]
  20. VITAMIN D [Concomitant]
  21. LASIX [Concomitant]

REACTIONS (7)
  - KIDNEY INFECTION [None]
  - FALL [None]
  - LIVER FUNCTION TEST ABNORMAL [None]
  - PELVIC FRACTURE [None]
  - URINARY TRACT INFECTION [None]
  - PHARYNGITIS [None]
  - ABDOMINAL DISCOMFORT [None]
